FAERS Safety Report 8880648 (Version 1)
Quarter: 2012Q4

REPORT INFORMATION
  Report Type: 
  Country: US (occurrence: US)
  Receive Date: 20121101
  Receipt Date: 20121101
  Transmission Date: 20130627
  Serious: Yes (Other)
  Sender: FDA-Public Use
  Company Number: US-JNJFOC-20121011236

PATIENT
  Age: 34 Year
  Sex: Female

DRUGS (2)
  1. USTEKINUMAB [Suspect]
     Indication: CROHN^S DISEASE
     Route: 058
  2. USTEKINUMAB [Suspect]
     Indication: CROHN^S DISEASE
     Route: 058

REACTIONS (6)
  - Diarrhoea haemorrhagic [Recovered/Resolved]
  - Arthralgia [Recovering/Resolving]
  - Crohn^s disease [Recovering/Resolving]
  - Exposure during pregnancy [Recovered/Resolved]
  - Off label use [Unknown]
  - Therapeutic response unexpected [Unknown]
